FAERS Safety Report 6197714-2 (Version None)
Quarter: 2009Q2

REPORT INFORMATION
  Report Type: 
  Country: None (occurrence: None)
  Receive Date: 20090512
  Receipt Date: 20090424
  Transmission Date: 20091009
  Serious: Yes (Hospitalization)
  Sender: FDA-Public Use
  Company Number: THYM-1001041

PATIENT
  Age: 57 Year
  Sex: Female

DRUGS (11)
  1. THYMOGLOBULIN [Suspect]
     Indication: BONE MARROW CONDITIONING REGIMEN
     Dosage: 1.5 MG/G, QD, INTRAVENOUS
     Route: 042
     Dates: start: 20080101, end: 20080101
  2. TOTAL LYMPHOID IRRADIATION (TOTALLY LYMPHOID IRRADIATION) [Concomitant]
  3. MORPHINE [Concomitant]
  4. LORAZEPAM [Concomitant]
  5. ATENOLOL [Concomitant]
  6. PRILOSEC [Concomitant]
  7. KLOR-CON [Concomitant]
  8. NIFEDIPINE [Concomitant]
  9. FLUCONAZOLE [Concomitant]
  10. NEBUPENT [Concomitant]
  11. ACYCLOVIR [Concomitant]

REACTIONS (5)
  - ACUTE GRAFT VERSUS HOST DISEASE IN INTESTINE [None]
  - CULTURE URINE POSITIVE [None]
  - ESCHERICHIA INFECTION [None]
  - PYREXIA [None]
  - URINARY TRACT INFECTION [None]
